FAERS Safety Report 22270177 (Version 1)
Quarter: 2023Q2

REPORT INFORMATION
  Report Type: Spontaneous
  Country: US (occurrence: None)
  Receive Date: 20230428
  Receipt Date: 20230428
  Transmission Date: 20230722
  Serious: Yes (Other)
  Sender: FDA-Public Use
  Company Number: None

PATIENT
  Age: 71 Year
  Sex: Male
  Weight: 74.25 kg

DRUGS (4)
  1. NITROFURANTOIN MONOHYDRATE MACROCRYSTALS [Suspect]
     Active Substance: NITROFURANTOIN\NITROFURANTOIN MONOHYDRATE
     Indication: Urinary tract infection
     Dates: start: 20230425, end: 20230426
  2. Tadalafil (5mg per day) [Concomitant]
  3. Testosterone gel (2 pumps per shoulder per day) [Concomitant]
  4. One Mulitivimain per day [Concomitant]

REACTIONS (6)
  - Abdominal pain upper [None]
  - Abdominal pain [None]
  - Malaise [None]
  - Vertigo [None]
  - Dizziness [None]
  - Nausea [None]

NARRATIVE: CASE EVENT DATE: 20230426
